FAERS Safety Report 5229261-6 (Version None)
Quarter: 2007Q1

REPORT INFORMATION
  Report Type: 
  Country: None (occurrence: None)
  Receive Date: 20061201
  Receipt Date: 20060822
  Transmission Date: 20070707
  Serious: No
  Sender: FDA-Public Use
  Company Number: US200608001532

PATIENT
  Age: 81 Year
  Sex: Female
  Weight: 54.4 kg

DRUGS (8)
  1. CYMBALTA [Suspect]
     Indication: PAIN
     Dosage: 20 MG ; 60 MG; 40 MG
     Dates: start: 20060712, end: 20060802
  2. CYMBALTA [Suspect]
     Indication: PAIN
     Dosage: 20 MG ; 60 MG; 40 MG
     Dates: start: 20060801
  3. CELEXA [Concomitant]
  4. VICODIN [Concomitant]
  5. SEROQUEL /UNK/ (QUETIAPINE FUMARATE) [Concomitant]
  6. TRAZODONE HCL [Concomitant]
  7. ATIVAN [Concomitant]
  8. OXYCONTIN [Concomitant]

REACTIONS (4)
  - AGITATION [None]
  - CRYING [None]
  - DELIRIUM [None]
  - DELUSION [None]
